FAERS Safety Report 9160173 (Version 3)
Quarter: 2013Q2

REPORT INFORMATION
  Report Type: Spontaneous
  Country: US (occurrence: US)
  Receive Date: 20130313
  Receipt Date: 20130503
  Transmission Date: 20140414
  Serious: Yes (Disabling)
  Sender: FDA-Public Use
  Company Number: US-GILEAD-2013-0071322

PATIENT
  Sex: Male

DRUGS (2)
  1. LETAIRIS [Suspect]
     Indication: PULMONARY HYPERTENSION
     Dosage: 5 MG, QD
     Dates: start: 20120321, end: 20121213
  2. LETAIRIS [Suspect]
     Indication: EISENMENGER^S SYNDROME

REACTIONS (2)
  - Gout [Not Recovered/Not Resolved]
  - Oedema peripheral [Not Recovered/Not Resolved]
